FAERS Safety Report 14557246 (Version 3)
Quarter: 2018Q3

REPORT INFORMATION
  Report Type: Spontaneous
  Country: ES (occurrence: ES)
  Receive Date: 20180221
  Receipt Date: 20180723
  Transmission Date: 20181010
  Serious: Yes (Other)
  Sender: FDA-Public Use
  Company Number: ES-TEVA-2018-ES-857768

PATIENT
  Age: 45 Year
  Sex: Male

DRUGS (7)
  1. TACROLIMUS. [Suspect]
     Active Substance: TACROLIMUS
     Dosage: SP
     Route: 048
     Dates: start: 20170503
  2. PARACETAMOL [Concomitant]
     Active Substance: ACETAMINOPHEN
     Dosage: 1GR/8H
     Route: 042
     Dates: start: 20170501
  3. HIDROCORTISONA [Suspect]
     Active Substance: HYDROCORTISONE
     Dosage: 100 MG
     Route: 042
     Dates: start: 20170501, end: 20170506
  4. DEXCLORFENIRAMINA [Concomitant]
     Active Substance: DEXCHLORPHENIRAMINE
     Dosage: 5MG
     Route: 042
     Dates: start: 20170501, end: 20170506
  5. MYCOPHENOLATE AC [Suspect]
     Active Substance: MYCOPHENOLATE MOFETIL
     Dosage: 180 MG/12H
     Route: 048
     Dates: start: 20170502
  6. PANTOPRAZOL [Concomitant]
     Active Substance: PANTOPRAZOLE SODIUM
     Dosage: 40 MG
     Route: 042
     Dates: start: 20170501
  7. INMUNOGLOBULINA ANTI TIMOCITICA (RABBIT) [Suspect]
     Active Substance: LAPINE T-LYMPHOCYTE IMMUNE GLOBULIN
     Dosage: 175 MG
     Route: 042
     Dates: start: 20170501, end: 20170504

REACTIONS (2)
  - Hyperamylasaemia [Unknown]
  - Hyperlipasaemia [Unknown]

NARRATIVE: CASE EVENT DATE: 20170508
